FAERS Safety Report 8045086-0 (Version None)
Quarter: 2012Q1

REPORT INFORMATION
  Report Type: 
  Country: None (occurrence: None)
  Receive Date: 20120113
  Receipt Date: 20120110
  Transmission Date: 20120608
  Serious: Yes (Death, Other)
  Sender: FDA-Public Use
  Company Number: PHHY2011DE111453

PATIENT
  Sex: Male
  Weight: 107 kg

DRUGS (3)
  1. TORISEL [Concomitant]
     Dosage: 25 MG, UNK
     Dates: start: 20110419, end: 20110503
  2. FENISTIL [Concomitant]
     Dates: start: 20110419, end: 20110503
  3. ZOMETA [Suspect]
     Indication: BONE DISORDER
     Dosage: 4 MG EVERY 4 WEEKS
     Route: 042
     Dates: start: 20110412

REACTIONS (2)
  - GENERAL PHYSICAL HEALTH DETERIORATION [None]
  - RENAL FAILURE [None]
